APPROVED DRUG PRODUCT: UNIRETIC
Active Ingredient: HYDROCHLOROTHIAZIDE; MOEXIPRIL HYDROCHLORIDE
Strength: 12.5MG;7.5MG **Federal Register determination that product was not discontinued or withdrawn for safety or effectiveness reasons**
Dosage Form/Route: TABLET;ORAL
Application: N020729 | Product #001
Applicant: UCB INC
Approved: Jun 27, 1997 | RLD: No | RS: No | Type: DISCN